FAERS Safety Report 6204591-X (Version None)
Quarter: 2009Q2

REPORT INFORMATION
  Report Type: 
  Country: None (occurrence: None)
  Receive Date: 20090527
  Receipt Date: 20090518
  Transmission Date: 20091009
  Serious: Yes (Hospitalization)
  Sender: FDA-Public Use
  Company Number: JP-SANOFI-SYNTHELABO-A01200905201

PATIENT
  Sex: Female

DRUGS (4)
  1. CALCIUM LEVOFOLINATE [Suspect]
     Indication: RECTAL CANCER
     Dosage: UNK
     Route: 041
  2. FLUOROURACIL [Suspect]
     Indication: RECTAL CANCER
     Dosage: UNK
     Route: 041
  3. ELPLAT [Suspect]
     Indication: RECTAL CANCER
     Dosage: UNK
     Route: 041
  4. AVASTIN [Suspect]
     Indication: RECTAL CANCER
     Route: 041
     Dates: start: 20090410, end: 20090410

REACTIONS (1)
  - VAGINAL FISTULA [None]
